FAERS Safety Report 4936665-5 (Version None)
Quarter: 2006Q1

REPORT INFORMATION
  Report Type: 
  Country: None (occurrence: None)
  Receive Date: 20060302
  Receipt Date: 20060207
  Transmission Date: 20060701
  Serious: Yes (Hospitalization)
  Sender: FDA-Public Use
  Company Number: US200602001701

PATIENT
  Sex: Female

DRUGS (9)
  1. HUMULIN R [Suspect]
     Indication: DIABETES MELLITUS
  2. HUMULIN N [Suspect]
     Indication: DIABETES MELLITUS
  3. NORVASC           /DEN/(AMLODIPINE BESILATE) [Concomitant]
  4. PLAVIX [Concomitant]
  5. SPIRONOLACTONE [Concomitant]
  6. NEXIUM [Concomitant]
  7. XANAX          /USA/(ALPRAZOLAM) [Concomitant]
  8. DILANTIN [Concomitant]
  9. TENORMIN           /NEZ/(ATENOLOL0 [Concomitant]

REACTIONS (13)
  - ARTHRALGIA [None]
  - DEHYDRATION [None]
  - GLOSSODYNIA [None]
  - HYPERTENSION [None]
  - INTERVERTEBRAL DISC PROTRUSION [None]
  - NASAL CONGESTION [None]
  - PRURITUS GENERALISED [None]
  - RHINORRHOEA [None]
  - SKIN LESION [None]
  - SNEEZING [None]
  - SWOLLEN TONGUE [None]
  - VERTIGO [None]
  - VOMITING [None]
